FAERS Safety Report 10506598 (Version 1)
Quarter: 2014Q3

REPORT INFORMATION
  Report Type: Spontaneous
  Country: US (occurrence: None)
  Receive Date: 20140915
  Receipt Date: 20140915
  Transmission Date: 20150326
  Serious: Yes (Other)
  Sender: FDA-Public Use
  Company Number: JPI-P-031455

PATIENT
  Age: 36 Year
  Weight: 68.2 kg

DRUGS (10)
  1. CYMBALTA [Suspect]
     Active Substance: DULOXETINE HYDROCHLORIDE
     Indication: DEPRESSION
  2. MIRENA (LEVONORGESTREL) [Concomitant]
  3. RITALIN SR [Suspect]
     Active Substance: METHYLPHENIDATE HYDROCHLORIDE
     Dosage: 10 MG, 2-3 TIMES DAILY
  4. NUVIGIL [Concomitant]
     Active Substance: ARMODAFINIL
  5. XANAX [Concomitant]
     Active Substance: ALPRAZOLAM
  6. PERCOCET (OXYCODONE HYDROCHLORIDE, PARACETAMOL) [Concomitant]
  7. XYREM [Suspect]
     Active Substance: SODIUM OXYBATE
     Indication: NARCOLEPSY
     Route: 048
     Dates: start: 20130417, end: 201304
  8. IMITREX [Concomitant]
     Active Substance: SUMATRIPTAN\SUMATRIPTAN SUCCINATE
  9. XYREM [Suspect]
     Active Substance: SODIUM OXYBATE
     Indication: CATAPLEXY
     Route: 048
     Dates: start: 20130417, end: 201304
  10. MS CONTIN (MORPHINE SULFATE) [Concomitant]

REACTIONS (12)
  - Depression [None]
  - Blood urine present [None]
  - Nervousness [None]
  - Hyperhidrosis [None]
  - Agitation [None]
  - Nephrolithiasis [None]
  - Anxiety [None]
  - Heart rate increased [None]
  - Feeling abnormal [None]
  - Feeling jittery [None]
  - Blood pressure increased [None]
  - Pain [None]

NARRATIVE: CASE EVENT DATE: 201304
